FAERS Safety Report 23739874 (Version 2)
Quarter: 2024Q2

REPORT INFORMATION
  Report Type: Other
  Country: US (occurrence: None)
  Receive Date: 20240414
  Receipt Date: 20240426
  Transmission Date: 20240715
  Serious: Yes (Death)
  Sender: FDA-Public Use
  Company Number: US-ROCHE-3544954

PATIENT
  Age: 75 Year
  Sex: Female

DRUGS (3)
  1. PHESGO [Suspect]
     Active Substance: HYALURONIDASE-ZZXF\PERTUZUMAB\TRASTUZUMAB
     Indication: Breast cancer female
     Dosage: INJECT 10ML SUBCUTANEOUSLY EVERY 3 WEEK.?SHE RECEIVED THERAPY ON 19/OCT/2023, 09/NOV/2023,  18/JAN/2
     Route: 058
  2. LETROZOLE [Concomitant]
     Active Substance: LETROZOLE
  3. HYALURONIDASE [Concomitant]
     Active Substance: HYALURONIDASE

REACTIONS (1)
  - Death [Fatal]

NARRATIVE: CASE EVENT DATE: 20240101
